FAERS Safety Report 21273243 (Version 5)
Quarter: 2024Q3

REPORT INFORMATION
  Report Type: Spontaneous
  Country: JP (occurrence: JP)
  Receive Date: 20220831
  Receipt Date: 20240919
  Transmission Date: 20241016
  Serious: Yes (Hospitalization, Other)
  Sender: NOVARTIS
  Company Number: JP-NOVARTISPH-NVSJ2022JP096346

PATIENT
  Weight: 2.64 kg

DRUGS (1)
  1. ELTROMBOPAG [Suspect]
     Active Substance: ELTROMBOPAG
     Indication: Foetal exposure during pregnancy
     Dosage: MATERNAL EXPOSURE DURING PREGNANCY
     Route: 064

REACTIONS (6)
  - Thrombocytopenia neonatal [Recovering/Resolving]
  - Petechiae [Unknown]
  - Mouth haemorrhage [Unknown]
  - Enterococcal bacteraemia [Recovering/Resolving]
  - Staphylococcal bacteraemia [Recovering/Resolving]
  - Foetal exposure during pregnancy [Unknown]
